FAERS Safety Report 9967527 (Version 1)
Quarter: 2014Q1

REPORT INFORMATION
  Report Type: Report from Study
  Country: US (occurrence: US)
  Receive Date: 20140305
  Receipt Date: 20140305
  Transmission Date: 20141002
  Serious: No
  Sender: FDA-Public Use
  Company Number: US-ABBVIE-13P-163-1138653-00

PATIENT
  Age: 59 Year
  Sex: Female
  Weight: 79.45 kg

DRUGS (9)
  1. HUMIRA [Suspect]
     Indication: PSORIASIS
     Route: 058
     Dates: start: 20130801
  2. INSULIN [Concomitant]
     Indication: DIABETES MELLITUS
  3. JANUVIA [Concomitant]
     Indication: DIABETES MELLITUS
  4. ALPRAZOLAM [Concomitant]
     Indication: ANXIETY
  5. LOSARTAN [Concomitant]
     Indication: HYPERTENSION
  6. CHLOROTHALIDONE [Concomitant]
     Indication: HYPERTENSION
  7. AMLODIPINE [Concomitant]
     Indication: HYPERTENSION
  8. FOLIC ACID [Concomitant]
     Indication: PRODUCT USED FOR UNKNOWN INDICATION
  9. NAPROXEN [Concomitant]
     Indication: PAIN

REACTIONS (1)
  - Vision blurred [Recovering/Resolving]
